FAERS Safety Report 25240509 (Version 1)
Quarter: 2025Q2

REPORT INFORMATION
  Report Type: Spontaneous
  Country: US (occurrence: US)
  Receive Date: 20250425
  Receipt Date: 20250425
  Transmission Date: 20250717
  Serious: No
  Sender: NOVARTIS
  Company Number: US-002147023-NVSC2025US068085

PATIENT

DRUGS (2)
  1. ILARIS [Suspect]
     Active Substance: CANAKINUMAB
     Indication: Product used for unknown indication
     Route: 050
  2. ILARIS [Suspect]
     Active Substance: CANAKINUMAB
     Route: 050

REACTIONS (1)
  - Product temperature excursion issue [Unknown]
